FAERS Safety Report 4301487-5 (Version None)
Quarter: 2004Q1

REPORT INFORMATION
  Report Type: 
  Country: None (occurrence: None)
  Receive Date: 20040218
  Receipt Date: 20040210
  Transmission Date: 20041129
  Serious: Yes (Death)
  Sender: FDA-Public Use
  Company Number: US-JNJFOC-20031100101

PATIENT
  Age: 70 Year
  Sex: 0

DRUGS (1)
  1. NIZORAL [Suspect]
     Indication: DRUG USE FOR UNKNOWN INDICATION
     Dosage: ORAL
     Route: 048

REACTIONS (5)
  - CAROTID ARTERY STENOSIS [None]
  - EJECTION FRACTION DECREASED [None]
  - ISCHAEMIC STROKE [None]
  - PERICARDIAL EFFUSION [None]
  - URINARY TRACT INFECTION [None]
